FAERS Safety Report 10861266 (Version 1)
Quarter: 2015Q1

REPORT INFORMATION
  Report Type: Spontaneous
  Country: US (occurrence: US)
  Receive Date: 20150224
  Receipt Date: 20150224
  Transmission Date: 20150721
  Serious: Yes (Death)
  Sender: FDA-Public Use
  Company Number: US-BANPHARM-20153466

PATIENT
  Age: 37 Year
  Sex: Female

DRUGS (6)
  1. ORPHENADRINE [Suspect]
     Active Substance: ORPHENADRINE
  2. OMEPRAZOLE. [Suspect]
     Active Substance: OMEPRAZOLE
  3. OXYCODONE [Suspect]
     Active Substance: OXYCODONE
  4. CETIRIZINE [Suspect]
     Active Substance: CETIRIZINE HYDROCHLORIDE
     Indication: COMPLETED SUICIDE
     Route: 048
  5. VENLAFAXINE [Suspect]
     Active Substance: VENLAFAXINE HYDROCHLORIDE
  6. GABAPENTIN. [Suspect]
     Active Substance: GABAPENTIN

REACTIONS (2)
  - Completed suicide [Fatal]
  - Exposure via ingestion [None]
